FAERS Safety Report 4717282-9 (Version None)
Quarter: 2005Q3

REPORT INFORMATION
  Report Type: 
  Country: None (occurrence: None)
  Receive Date: 20050715
  Receipt Date: 20050704
  Transmission Date: 20060218
  Serious: Yes (Hospitalization)
  Sender: FDA-Public Use
  Company Number: 2005097632

PATIENT
  Age: 57 Year
  Sex: Female

DRUGS (3)
  1. VFEND [Suspect]
     Indication: BRONCHOPULMONARY ASPERGILLOSIS
     Dosage: 400 MG (200 MG, 2 IN 1 D)
     Dates: start: 20050101
  2. PHENOXYMETHYL PENICILLIN (PHENOXYMETHYLPENICILLIN) [Concomitant]
  3. ACYCLOVIR [Concomitant]

REACTIONS (5)
  - CHOLESTASIS [None]
  - CONDITION AGGRAVATED [None]
  - CYTOLYTIC HEPATITIS [None]
  - LIVER DISORDER [None]
  - PULMONARY EMBOLISM [None]
